FAERS Safety Report 23707043 (Version 1)
Quarter: 2024Q2

REPORT INFORMATION
  Report Type: Report from Study
  Country: US (occurrence: US)
  Receive Date: 20240404
  Receipt Date: 20240404
  Transmission Date: 20240716
  Serious: Yes (Other)
  Sender: FDA-Public Use
  Company Number: US-ABBVIE-5702768

PATIENT
  Age: 66 Year
  Sex: Female

DRUGS (1)
  1. VENETOCLAX [Suspect]
     Active Substance: VENETOCLAX
     Indication: Acute myeloid leukaemia
     Dosage: TAKE 1 TABLET BY MOUTH DAILY FOR 21 DAYS ON THEN 7 DAYS OFF WITH FOOD AND WATER
     Route: 048
     Dates: end: 202403

REACTIONS (1)
  - Stem cell transplant [Recovered/Resolved]

NARRATIVE: CASE EVENT DATE: 20240301
